FAERS Safety Report 11582749 (Version 1)
Quarter: 2015Q4

REPORT INFORMATION
  Report Type: Spontaneous
  Country: US (occurrence: US)
  Receive Date: 20151001
  Receipt Date: 20151001
  Transmission Date: 20160304
  Serious: No
  Sender: FDA-Public Use
  Company Number: US-ROCHE-683967

PATIENT
  Age: 44 Year
  Sex: Female
  Weight: 54 kg

DRUGS (8)
  1. ADVAIR HFA [Concomitant]
     Active Substance: FLUTICASONE PROPIONATE\SALMETEROL XINAFOATE
     Route: 065
  2. ALBUTEROL. [Concomitant]
     Active Substance: ALBUTEROL
     Route: 065
  3. COPEGUS [Suspect]
     Active Substance: RIBAVIRIN
     Indication: HEPATITIS C
     Dosage: TAKEN IN DIVIDED DOSES. FORM REPORTED AS PILLS.
     Route: 048
     Dates: start: 20090515, end: 200911
  4. COPEGUS [Suspect]
     Active Substance: RIBAVIRIN
     Dosage: DOSE WAS REDUCED
     Route: 048
  5. TRAZODONE [Concomitant]
     Active Substance: TRAZODONE HYDROCHLORIDE
     Route: 065
  6. PEGASYS [Suspect]
     Active Substance: PEGINTERFERON ALFA-2A
     Indication: HEPATITIS C
     Route: 065
     Dates: start: 20090515, end: 200911
  7. PEGASYS [Suspect]
     Active Substance: PEGINTERFERON ALFA-2A
     Route: 065
  8. CELEXA [Concomitant]
     Active Substance: CITALOPRAM HYDROBROMIDE
     Route: 065

REACTIONS (10)
  - Rash [Recovering/Resolving]
  - White blood cell count decreased [Recovering/Resolving]
  - Weight decreased [Recovering/Resolving]
  - Muscle disorder [Recovering/Resolving]
  - Alopecia [Recovering/Resolving]
  - Platelet count decreased [Recovering/Resolving]
  - Product quality issue [Unknown]
  - Needle issue [Unknown]
  - Procedural complication [Unknown]
  - Red blood cell count decreased [Recovering/Resolving]

NARRATIVE: CASE EVENT DATE: 20090505
